FAERS Safety Report 11686774 (Version 6)
Quarter: 2016Q4

REPORT INFORMATION
  Report Type: Report from Study
  Country: US (occurrence: US)
  Receive Date: 20151030
  Receipt Date: 20161025
  Transmission Date: 20170206
  Serious: Yes (Other)
  Sender: FDA-Public Use
  Company Number: PHHY2014US083924

PATIENT
  Age: 28 Year
  Sex: Male

DRUGS (1)
  1. GILENYA [Suspect]
     Active Substance: FINGOLIMOD HYDROCHLORIDE
     Indication: MULTIPLE SCLEROSIS
     Dosage: 0.5 MG, QD
     Route: 048

REACTIONS (34)
  - Haematochezia [Unknown]
  - Fatigue [Recovered/Resolved]
  - Nausea [Recovered/Resolved]
  - Fall [Unknown]
  - Headache [Unknown]
  - Insomnia [Unknown]
  - Multiple sclerosis relapse [Unknown]
  - Blindness transient [Unknown]
  - Sensory disturbance [Unknown]
  - Photophobia [Recovered/Resolved]
  - Abnormal dreams [Unknown]
  - Pain [Recovered/Resolved]
  - Balance disorder [Unknown]
  - Neuralgia [Recovered/Resolved]
  - Post herpetic neuralgia [Recovered/Resolved]
  - Erectile dysfunction [Unknown]
  - Neuralgia [Unknown]
  - Depression [Unknown]
  - Musculoskeletal chest pain [Recovered/Resolved]
  - Incontinence [Unknown]
  - Urinary retention [Recovered/Resolved]
  - Ocular hypertension [Unknown]
  - Abdominal discomfort [Recovered/Resolved]
  - Visual impairment [Unknown]
  - Fatigue [Unknown]
  - Constipation [Recovered/Resolved]
  - Dysuria [Recovered/Resolved]
  - Diarrhoea [Recovered/Resolved]
  - Pain in extremity [Unknown]
  - Micturition urgency [Unknown]
  - Fall [Recovered/Resolved]
  - Vertigo [Recovered/Resolved]
  - Constipation [Unknown]
  - Eye pain [Unknown]

NARRATIVE: CASE EVENT DATE: 20130517
